FAERS Safety Report 10760589 (Version 2)
Quarter: 2015Q3

REPORT INFORMATION
  Report Type: Report from Study
  Country: AU (occurrence: AU)
  Receive Date: 20150204
  Receipt Date: 20150730
  Transmission Date: 20151125
  Serious: No
  Sender: FDA-Public Use
  Company Number: AU-ROCHE-1531369

PATIENT
  Age: 63 Year
  Sex: Female

DRUGS (1)
  1. ACTEMRA [Suspect]
     Active Substance: TOCILIZUMAB
     Indication: RHEUMATOID ARTHRITIS
     Route: 042
     Dates: start: 20140630

REACTIONS (4)
  - Anaemia [Recovered/Resolved]
  - Arthritis [Unknown]
  - Rotator cuff syndrome [Unknown]
  - Benign neoplasm [Unknown]

NARRATIVE: CASE EVENT DATE: 201501
